FAERS Safety Report 18631504 (Version 1)
Quarter: 2020Q4

REPORT INFORMATION
  Report Type: Report from Study
  Country: US (occurrence: US)
  Receive Date: 20201217
  Receipt Date: 20201217
  Transmission Date: 20210114
  Serious: Yes (Hospitalization, Other)
  Sender: FDA-Public Use
  Company Number: US-BAUSCH-BL-2020-037367

PATIENT
  Age: 84 Year
  Sex: Female

DRUGS (3)
  1. LACTULOSE. [Concomitant]
     Active Substance: LACTULOSE
     Indication: HEPATIC ENCEPHALOPATHY
     Route: 065
  2. XIFAXAN [Suspect]
     Active Substance: RIFAXIMIN
     Indication: HEPATIC ENCEPHALOPATHY
     Route: 065
  3. XIFAXAN [Suspect]
     Active Substance: RIFAXIMIN
     Dosage: RESTARTED AFTER DISCONTINUATION DUE TO COST
     Route: 065

REACTIONS (4)
  - Hepatic encephalopathy [Unknown]
  - Inability to afford medication [Unknown]
  - Therapy interrupted [Unknown]
  - Orthostatic hypotension [Unknown]
